FAERS Safety Report 7581696-2 (Version None)
Quarter: 2011Q2

REPORT INFORMATION
  Report Type: 
  Country: None (occurrence: None)
  Receive Date: 20110629
  Receipt Date: 20110627
  Transmission Date: 20111010
  Serious: Yes (Other)
  Sender: FDA-Public Use
  Company Number: US-PFIZER INC-2011108642

PATIENT
  Sex: Female
  Weight: 79.819 kg

DRUGS (6)
  1. VISTARIL [Suspect]
     Indication: PANIC ATTACK
     Dosage: 25 MG, AS NEEDED
     Dates: start: 20110501, end: 20110501
  2. SYNTHROID [Concomitant]
     Indication: HYPERTHYROIDISM
     Dosage: 125 UG, DAILY
     Route: 048
  3. EFFEXOR XR [Suspect]
     Indication: BIPOLAR I DISORDER
     Dosage: 300 MG, DAILY
     Route: 048
     Dates: start: 19960101, end: 20110513
  4. PRISTIQ [Suspect]
     Indication: DEPRESSION
  5. EFFEXOR XR [Suspect]
     Indication: DEPRESSION
     Dosage: 150 MG, DAILY
  6. PRISTIQ [Suspect]
     Indication: BIPOLAR I DISORDER
     Dosage: 50 MG, DAILY
     Route: 048
     Dates: start: 20110513

REACTIONS (4)
  - PANIC ATTACK [None]
  - ANXIETY [None]
  - NIGHTMARE [None]
  - SOMNOLENCE [None]
